FAERS Safety Report 8405784-3 (Version None)
Quarter: 2012Q2

REPORT INFORMATION
  Report Type: 
  Country: None (occurrence: None)
  Receive Date: 20120604
  Receipt Date: 20120529
  Transmission Date: 20120825
  Serious: No
  Sender: FDA-Public Use
  Company Number: US-PFIZER INC-2012092800

PATIENT
  Sex: Female
  Weight: 76.19 kg

DRUGS (2)
  1. PREMARIN [Suspect]
     Indication: MENOPAUSE
     Dosage: UNK
     Dates: start: 20120320, end: 20120401
  2. CYMBALTA [Concomitant]
     Indication: FIBROMYALGIA
     Dosage: 90 MG, DAILY

REACTIONS (2)
  - HYPERSENSITIVITY [None]
  - PRURITUS [None]
